FAERS Safety Report 11774281 (Version 2)
Quarter: 2017Q4

REPORT INFORMATION
  Report Type: Spontaneous
  Country: US (occurrence: US)
  Receive Date: 20151124
  Receipt Date: 20171221
  Transmission Date: 20180320
  Serious: No
  Sender: FDA-Public Use
  Company Number: US-PFIZER INC-2015404611

PATIENT
  Age: 63 Year
  Sex: Female
  Weight: 118 kg

DRUGS (2)
  1. IBUPROFEN. [Suspect]
     Active Substance: IBUPROFEN
     Dosage: UNK
  2. ASPIRIN. [Suspect]
     Active Substance: ASPIRIN
     Dosage: UNK

REACTIONS (3)
  - Vomiting [Unknown]
  - Nausea [Unknown]
  - Drug hypersensitivity [Unknown]
